FAERS Safety Report 17697023 (Version 2)
Quarter: 2020Q2

REPORT INFORMATION
  Report Type: Report from Study
  Country: KR (occurrence: KR)
  Receive Date: 20200423
  Receipt Date: 20200504
  Transmission Date: 20200714
  Serious: Yes (Death, Hospitalization)
  Sender: FDA-Public Use
  Company Number: KR-CELLTRION INC.-2020KR021684

PATIENT

DRUGS (21)
  1. NYSTATIN. [Concomitant]
     Active Substance: NYSTATIN
     Indication: MOUTH HAEMORRHAGE
     Dosage: 5 ML, QD
     Route: 048
     Dates: start: 20200305, end: 20200317
  2. LASIX [Concomitant]
     Active Substance: FUROSEMIDE
     Indication: ACUTE KIDNEY INJURY
     Dosage: 20 MG, QD
     Route: 048
     Dates: start: 20191031, end: 20200304
  3. CORTISOL [Concomitant]
     Active Substance: HYDROCORTISONE
     Indication: MICROSCOPIC POLYANGIITIS
     Dosage: 60 MG, QD
     Route: 042
     Dates: start: 20200211, end: 20200317
  4. CIPROFLOXACIN. [Concomitant]
     Active Substance: CIPROFLOXACIN
     Indication: PNEUMONIA
     Dosage: 400 MG, QD
     Route: 042
     Dates: start: 20200219, end: 20200224
  5. DIFLUCAN [Concomitant]
     Active Substance: FLUCONAZOLE
     Indication: MOUTH HAEMORRHAGE
     Dosage: 5 ML, QD
     Route: 048
     Dates: start: 20200306, end: 20200317
  6. VESICARE [Concomitant]
     Active Substance: SOLIFENACIN SUCCINATE
     Indication: BENIGN PROSTATIC HYPERPLASIA
     Dosage: 5 MG, QD
     Route: 048
     Dates: start: 20171102, end: 20200220
  7. SEPTRIN [Concomitant]
     Active Substance: SULFAMETHOXAZOLE\TRIMETHOPRIM
     Indication: BACTERAEMIA
     Dosage: 1 DF, QD
     Route: 048
     Dates: start: 20191028, end: 20200305
  8. TRITTICO [Concomitant]
     Active Substance: TRAZODONE HYDROCHLORIDE
     Indication: INSOMNIA
     Dosage: 25 MG, QD
     Route: 048
     Dates: start: 20200312, end: 20200317
  9. SODIUM BICARBONATE. [Concomitant]
     Active Substance: SODIUM BICARBONATE
     Indication: ACUTE KIDNEY INJURY
     Dosage: 280 MG
     Route: 065
     Dates: start: 20200317, end: 20200317
  10. MAGNESIUM SULFATE. [Concomitant]
     Active Substance: MAGNESIUM SULFATE
     Indication: ACUTE KIDNEY INJURY
     Dosage: 2 GRAM
     Route: 065
     Dates: start: 20200317, end: 20200317
  11. MAXIPIME [Concomitant]
     Active Substance: CEFEPIME HYDROCHLORIDE
     Indication: PNEUMONIA
     Dosage: 500 MG, QD
     Route: 042
     Dates: start: 20200215, end: 20200316
  12. VFEND [Concomitant]
     Active Substance: VORICONAZOLE
     Indication: PNEUMONIA
     Dosage: 200 MG, BID
     Route: 042
     Dates: start: 20200217, end: 20200317
  13. NORPIN [BUPRENORPHINE HYDROCHLORIDE] [Concomitant]
     Indication: ACUTE KIDNEY INJURY
     Dosage: 20 MG
     Route: 042
     Dates: start: 20200317, end: 20200317
  14. MADIPINE [Concomitant]
     Indication: HYPERTENSION
     Dosage: 20 MG, QD
     Route: 048
     Dates: start: 20191115, end: 20200317
  15. HARNAL [Concomitant]
     Active Substance: TAMSULOSIN HYDROCHLORIDE
     Indication: BENIGN PROSTATIC HYPERPLASIA
     Dosage: 0.2 MG, QD
     Route: 048
     Dates: start: 20171010, end: 20200304
  16. PANTOLOC [PANTOPRAZOLE] [Concomitant]
     Active Substance: PANTOPRAZOLE SODIUM
     Indication: GASTROOESOPHAGEAL REFLUX DISEASE
     Dosage: 40 MG, QD
     Route: 042
     Dates: start: 20200211, end: 20200317
  17. XEROVA [ATORVASTATIN CALCIUM TRIHYDRATE] [Concomitant]
     Indication: MOUTH HAEMORRHAGE
     Dosage: 40 ML, QD; ROUTE GARGLE
     Dates: start: 20200306, end: 20200317
  18. TRUXIMA [Suspect]
     Active Substance: RITUXIMAB-ABBS
     Indication: MICROSCOPIC POLYANGIITIS
     Dosage: 500 MG, 1/WEEK
     Route: 042
     Dates: start: 20191105, end: 20191126
  19. FEROBA YOU SR [Concomitant]
     Indication: ANAEMIA
     Dosage: 512 MG, QD
     Route: 048
     Dates: start: 20191018, end: 20200304
  20. TAZOPERAN [Concomitant]
     Indication: BACTERAEMIA
     Dosage: 2.25 GRAM, QID
     Route: 042
     Dates: start: 20191102, end: 20191126
  21. EPINEPHRINE. [Concomitant]
     Active Substance: EPINEPHRINE
     Indication: ACUTE KIDNEY INJURY
     Dosage: 1 MG
     Route: 042
     Dates: start: 20200317, end: 20200317

REACTIONS (1)
  - Enterocolitis [Not Recovered/Not Resolved]

NARRATIVE: CASE EVENT DATE: 20200131
